FAERS Safety Report 20943144 (Version 1)
Quarter: 2022Q2

REPORT INFORMATION
  Report Type: Spontaneous
  Country: US (occurrence: US)
  Receive Date: 20220610
  Receipt Date: 20220610
  Transmission Date: 20220720
  Serious: No
  Sender: FDA-Public Use
  Company Number: US-ORGANON-O2206USA000333

PATIENT
  Sex: Female

DRUGS (1)
  1. NEXPLANON [Suspect]
     Active Substance: ETONOGESTREL
     Indication: Dysmenorrhoea
     Dosage: 1 IMPLANT
     Route: 059

REACTIONS (4)
  - Heavy menstrual bleeding [Recovered/Resolved]
  - Heavy menstrual bleeding [Unknown]
  - Product use in unapproved indication [Unknown]
  - Product prescribing issue [Unknown]
